FAERS Safety Report 20069725 (Version 1)
Quarter: 2021Q4

REPORT INFORMATION
  Report Type: Spontaneous
  Country: GB (occurrence: GB)
  Receive Date: 20211115
  Receipt Date: 20211115
  Transmission Date: 20220303
  Serious: Yes (Hospitalization, Other)
  Sender: FDA-Public Use
  Company Number: None

PATIENT
  Age: 42 Year
  Sex: Male

DRUGS (12)
  1. HALOPERIDOL [Suspect]
     Active Substance: HALOPERIDOL
     Indication: Ill-defined disorder
     Dosage: 5 MILLIGRAM, TID 5MG TDS
     Route: 048
  2. OLANZAPINE [Suspect]
     Active Substance: OLANZAPINE
     Indication: Ill-defined disorder
     Dosage: 10 MILLIGRAM, QD, 10MG OD PRN
     Route: 048
  3. PROCYCLIDINE [Suspect]
     Active Substance: PROCYCLIDINE
     Indication: Ill-defined disorder
     Dosage: 5 MILLIGRAM, TID, 5MG TDS
     Route: 048
  4. TRAZODONE [Suspect]
     Active Substance: TRAZODONE HYDROCHLORIDE
     Indication: Ill-defined disorder
     Dosage: 100 MILLIGRAM, 100MG ON
     Route: 048
  5. ZUCLOPENTHIXOL [Suspect]
     Active Substance: ZUCLOPENTHIXOL
     Indication: Ill-defined disorder
     Dosage: 100 MILLIGRAM, 100MG IM STAT
     Route: 030
  6. CO-AMOXICLAV                       /00756801/ [Concomitant]
     Indication: Ill-defined disorder
     Dosage: UNK
  7. PROMETHAZINE [Suspect]
     Active Substance: PROMETHAZINE HYDROCHLORIDE
     Indication: Ill-defined disorder
     Dosage: 5 MILLIGRAM, TID, 5MG TDS
     Route: 048
  8. ENOXAPARIN [Concomitant]
     Active Substance: ENOXAPARIN
     Indication: Ill-defined disorder
     Dosage: UNK
  9. LORAZEPAM [Concomitant]
     Active Substance: LORAZEPAM
     Indication: Ill-defined disorder
     Dosage: UNK
  10. METHADONE [Concomitant]
     Active Substance: METHADONE HYDROCHLORIDE
     Indication: Ill-defined disorder
     Dosage: UNK
  11. NITROFURANTOIN [Concomitant]
     Active Substance: NITROFURANTOIN
     Indication: Ill-defined disorder
     Dosage: UNK
  12. NITRAZEPAM [Concomitant]
     Active Substance: NITRAZEPAM
     Indication: Ill-defined disorder

REACTIONS (6)
  - Neuroleptic malignant syndrome [Unknown]
  - Dystonia [Unknown]
  - Somnolence [Unknown]
  - Liver function test abnormal [Unknown]
  - Tachycardia [Unknown]
  - Fibrin D dimer increased [Unknown]
